FAERS Safety Report 5415551-0 (Version None)
Quarter: 2007Q3

REPORT INFORMATION
  Report Type: 
  Country: None (occurrence: None)
  Receive Date: 20070815
  Receipt Date: 20070808
  Transmission Date: 20080115
  Serious: Yes (Hospitalization)
  Sender: FDA-Public Use
  Company Number: B0483071A

PATIENT
  Age: 20 Year
  Sex: Female

DRUGS (5)
  1. AUGMENTIN '125' [Suspect]
     Route: 065
     Dates: start: 20070531, end: 20070601
  2. INNOHEP [Suspect]
     Indication: PROPHYLAXIS
     Route: 058
     Dates: start: 20070531, end: 20070605
  3. TRIFLUCAN [Suspect]
     Route: 042
     Dates: start: 20070526, end: 20070603
  4. IDARAC [Suspect]
     Route: 048
     Dates: start: 20070520, end: 20070602
  5. CHEMOTHERAPY [Concomitant]
     Route: 065
     Dates: start: 20070505

REACTIONS (4)
  - DERMATOSIS [None]
  - PRURITUS [None]
  - RASH ERYTHEMATOUS [None]
  - RASH MACULAR [None]
